FAERS Safety Report 8212148-4 (Version None)
Quarter: 2012Q1

REPORT INFORMATION
  Report Type: 
  Country: None (occurrence: None)
  Receive Date: 20120315
  Receipt Date: 20120313
  Transmission Date: 20120608
  Serious: Yes (Hospitalization, Disabling, Other)
  Sender: FDA-Public Use
  Company Number: PHEH2011US011004

PATIENT
  Sex: Female
  Weight: 90.703 kg

DRUGS (7)
  1. DIVIGEL [Concomitant]
     Dosage: 1 MG GEL
  2. VENTOLIN [Concomitant]
     Indication: ASTHMA
     Dosage: UNK UKN, PRN
  3. XOLAIR [Concomitant]
     Indication: ASTHMA
     Dosage: 225 MG EVERY 2 WEEKS
     Route: 058
     Dates: start: 20070831
  4. CYMBALTA [Concomitant]
     Indication: PAIN
     Dosage: 60 MG, ONCE A DAY
  5. MEDROXYPROGESTERONE [Concomitant]
     Dosage: 5 MG, ONCE A DAY
  6. RECLAST [Suspect]
     Dosage: 5 MG, ONCE YEARLY
     Route: 058
     Dates: start: 20100506
  7. RECLAST [Suspect]
     Indication: OSTEOPOROSIS
     Dosage: 5 MG, ONCE YEARLY
     Route: 058
     Dates: start: 20090310

REACTIONS (3)
  - FEMUR FRACTURE [None]
  - FALL [None]
  - INCORRECT ROUTE OF DRUG ADMINISTRATION [None]
